FAERS Safety Report 9404100 (Version 1)
Quarter: 2013Q3

REPORT INFORMATION
  Report Type: Spontaneous
  Country: US (occurrence: None)
  Receive Date: 20130716
  Receipt Date: 20130716
  Transmission Date: 20140515
  Serious: Yes (Other)
  Sender: FDA-Public Use
  Company Number: None

PATIENT
  Age: 70 Year
  Sex: Male
  Weight: 97.52 kg

DRUGS (3)
  1. PRAVASTATIN [Suspect]
     Indication: BLOOD CHOLESTEROL INCREASED
     Dosage: ONE PER DAY PO
     Route: 048
     Dates: start: 19950315, end: 20130715
  2. PRAVASTATIN [Suspect]
     Indication: CARDIAC DISORDER
     Dosage: ONE PER DAY PO
     Route: 048
     Dates: start: 19950315, end: 20130715
  3. PRAVACOL [Concomitant]

REACTIONS (4)
  - Nausea [None]
  - Dysgeusia [None]
  - Product substitution issue [None]
  - Product odour abnormal [None]
